FAERS Safety Report 5803573-7 (Version None)
Quarter: 2008Q3

REPORT INFORMATION
  Report Type: 
  Country: None (occurrence: None)
  Receive Date: 20080708
  Receipt Date: 20080627
  Transmission Date: 20090109
  Serious: Yes (Hospitalization)
  Sender: FDA-Public Use
  Company Number: IT-WYE-H03831208

PATIENT
  Sex: Female

DRUGS (6)
  1. CORDARONE [Suspect]
     Indication: ATRIAL FIBRILLATION
     Dosage: 150 MG (2 UNITS QD)
     Route: 042
     Dates: start: 20080410, end: 20080410
  2. AKINETON [Concomitant]
     Route: 048
  3. LANOXIN [Concomitant]
     Dosage: 1 UNIT EVERY 1 DAY
     Route: 042
  4. ENAPREN [Concomitant]
     Route: 048
  5. HEPARIN CALCIUM [Concomitant]
     Route: 058
  6. LANSOPRAZOLE [Concomitant]
     Dosage: 1 UNIT EVERY 1 DAY
     Route: 048

REACTIONS (1)
  - GENERALISED ERYTHEMA [None]
